FAERS Safety Report 15203617 (Version 2)
Quarter: 2018Q4

REPORT INFORMATION
  Report Type: Spontaneous
  Country: US (occurrence: US)
  Receive Date: 20180726
  Receipt Date: 20181019
  Transmission Date: 20190204
  Serious: No
  Sender: FDA-Public Use
  Company Number: US-LEXICON PHARMACEUTICALS, INC-18-1606-00819

PATIENT
  Sex: Male

DRUGS (3)
  1. TELOTRISTAT ETHYL [Suspect]
     Active Substance: TELOTRISTAT ETHYL
     Indication: CARCINOID TUMOUR
  2. TELOTRISTAT ETHYL [Suspect]
     Active Substance: TELOTRISTAT ETHYL
     Indication: GASTROINTESTINAL NEOPLASM
     Route: 048
     Dates: start: 20180207
  3. OCTREOTIDE. [Concomitant]
     Active Substance: OCTREOTIDE
     Dates: start: 20161201

REACTIONS (2)
  - Diarrhoea [Not Recovered/Not Resolved]
  - Radiotherapy [Not Recovered/Not Resolved]

NARRATIVE: CASE EVENT DATE: 2018
